FAERS Safety Report 11913728 (Version 1)
Quarter: 2016Q1

REPORT INFORMATION
  Report Type: Spontaneous
  Country: US (occurrence: US)
  Receive Date: 20160113
  Receipt Date: 20160113
  Transmission Date: 20160526
  Serious: No
  Sender: FDA-Public Use
  Company Number: US-PFIZER INC-2016006661

PATIENT
  Sex: Female

DRUGS (1)
  1. GABAPENTIN. [Suspect]
     Active Substance: GABAPENTIN
     Dosage: 3 DF, DAILY

REACTIONS (4)
  - Disturbance in attention [Unknown]
  - Somnolence [Unknown]
  - Cognitive disorder [Unknown]
  - Sedation [Unknown]
